FAERS Safety Report 17664747 (Version 1)
Quarter: 2020Q2

REPORT INFORMATION
  Report Type: Spontaneous
  Country: US (occurrence: US)
  Receive Date: 20200414
  Receipt Date: 20200414
  Transmission Date: 20200713
  Serious: Yes (Other)
  Sender: FDA-Public Use
  Company Number: US-009507513-2004USA002662

PATIENT
  Age: 70 Year
  Sex: Male

DRUGS (3)
  1. SINEMET [Suspect]
     Active Substance: CARBIDOPA\LEVODOPA
     Indication: PARKINSON^S DISEASE
     Dosage: UNKNOWN, FOUR TIMES DAILY
     Route: 065
  2. SINEMET [Suspect]
     Active Substance: CARBIDOPA\LEVODOPA
     Dosage: UNKNOWN THREE TIMES DAILY
     Route: 065
  3. DROXIDOPA [Suspect]
     Active Substance: DROXIDOPA
     Indication: BLOOD PRESSURE FLUCTUATION
     Dosage: 1800 MG, QD (ALSO REPORTED AS 600 MG, THREE TIMES DAILY)
     Route: 048
     Dates: start: 201503

REACTIONS (13)
  - Paraesthesia [Not Recovered/Not Resolved]
  - Aggression [Recovered/Resolved]
  - Head discomfort [Not Recovered/Not Resolved]
  - Memory impairment [Recovered/Resolved]
  - Hypoaesthesia [Not Recovered/Not Resolved]
  - Confusional state [Not Recovered/Not Resolved]
  - Muscle rigidity [Not Recovered/Not Resolved]
  - Feeling hot [Not Recovered/Not Resolved]
  - Hyperhidrosis [Not Recovered/Not Resolved]
  - Kidney infection [Unknown]
  - Tremor [Not Recovered/Not Resolved]
  - Movement disorder [Not Recovered/Not Resolved]
  - Musculoskeletal stiffness [Not Recovered/Not Resolved]

NARRATIVE: CASE EVENT DATE: 201509
